FAERS Safety Report 11164066 (Version 1)
Quarter: 2015Q2

REPORT INFORMATION
  Report Type: Report from Study
  Country: CA (occurrence: None)
  Receive Date: 20150602
  Receipt Date: 20150602
  Transmission Date: 20150821
  Serious: Yes (Hospitalization)
  Sender: FDA-Public Use
  Company Number: 2015FE01718

PATIENT
  Age: 73 Year
  Sex: Male

DRUGS (1)
  1. DEGARELIX [Suspect]
     Active Substance: DEGARELIX
     Indication: PROSTATE CANCER
     Dosage: 80 MG, MONTHLY, SUBCUTANEOUS
     Route: 058
     Dates: start: 20140430

REACTIONS (3)
  - Haemorrhage [None]
  - Head injury [None]
  - Fall [None]

NARRATIVE: CASE EVENT DATE: 20150514
